FAERS Safety Report 15979455 (Version 1)
Quarter: 2019Q1

REPORT INFORMATION
  Report Type: Spontaneous
  Country: US (occurrence: US)
  Receive Date: 20190217
  Receipt Date: 20190217
  Transmission Date: 20190418
  Serious: Yes (Other)
  Sender: FDA-Public Use
  Company Number: None

PATIENT
  Age: 53 Year
  Sex: Female
  Weight: 69.3 kg

DRUGS (6)
  1. CALCIUM ITH MAGNESIUM 500MG/250MG DAILY [Concomitant]
  2. CURCUMIN 700MG DAILY [Concomitant]
  3. CETIRIZINE HYDROCHLORIDE 10MG TABLETS [Suspect]
     Active Substance: CETIRIZINE HYDROCHLORIDE
     Indication: HYPERSENSITIVITY
     Dosage: ?          QUANTITY:1 TABLET(S);?
     Route: 048
  4. COQ10 100MG DAILY [Concomitant]
  5. VITAMIN D3 5000 U THREE TIMES WEEKLY [Concomitant]
  6. MELATONIN 1 MG AS NEEDED [Concomitant]

REACTIONS (5)
  - Pruritus [None]
  - Impaired work ability [None]
  - Skin disorder [None]
  - Contusion [None]
  - Insomnia [None]

NARRATIVE: CASE EVENT DATE: 20190215
